FAERS Safety Report 24575257 (Version 1)
Quarter: 2024Q4

REPORT INFORMATION
  Report Type: Spontaneous
  Country: US (occurrence: None)
  Receive Date: 20241101
  Receipt Date: 20241101
  Transmission Date: 20250114
  Serious: Yes (Hospitalization)
  Sender: Public
  Company Number: None

PATIENT
  Sex: Male

DRUGS (2)
  1. BALVERSA [Suspect]
     Active Substance: ERDAFITINIB
     Indication: Malignant neoplasm of renal pelvis
     Dosage: FREQUENCY : DAILY;?
     Route: 048
     Dates: start: 202409
  2. BALVERSA [Suspect]
     Active Substance: ERDAFITINIB
     Indication: Metastases to urinary tract

REACTIONS (1)
  - Peripheral swelling [None]
